FAERS Safety Report 4451685-5 (Version None)
Quarter: 2004Q3

REPORT INFORMATION
  Report Type: 
  Country: None (occurrence: None)
  Receive Date: 20040915
  Receipt Date: 20040907
  Transmission Date: 20050211
  Serious: Yes (Death)
  Sender: FDA-Public Use
  Company Number: 2004232048JP

PATIENT
  Age: 51 Year
  Sex: Female

DRUGS (1)
  1. CAMPTOSAR [Suspect]
     Indication: GASTRIC CANCER
     Dosage: 60 MG/M2, CYCLIC, IV DRIP
     Route: 041
     Dates: start: 20040811, end: 20040813

REACTIONS (1)
  - BONE MARROW DEPRESSION [None]
